FAERS Safety Report 19042088 (Version 1)
Quarter: 2021Q1

REPORT INFORMATION
  Report Type: Spontaneous
  Country: US (occurrence: US)
  Receive Date: 20210323
  Receipt Date: 20210323
  Transmission Date: 20210420
  Serious: Yes (Death, Hospitalization, Other)
  Sender: FDA-Public Use
  Company Number: US-HIKMA PHARMACEUTICALS USA INC.-US-H14001-21-01239

PATIENT
  Age: 44 Year
  Sex: Female
  Weight: 88 kg

DRUGS (4)
  1. ZOLBETUXIMAB. [Suspect]
     Active Substance: ZOLBETUXIMAB
     Indication: ADENOCARCINOMA GASTRIC
     Dosage: UNKNOWN
     Route: 042
     Dates: start: 20200701, end: 20201221
  2. OXALIPLATIN. [Suspect]
     Active Substance: OXALIPLATIN
     Indication: ADENOCARCINOMA GASTRIC
     Route: 042
     Dates: start: 20200701, end: 20200915
  3. LEUCOVORIN. [Suspect]
     Active Substance: LEUCOVORIN
     Indication: ADENOCARCINOMA GASTRIC
     Route: 042
     Dates: start: 20200701, end: 20201221
  4. FLUOROURACIL. [Suspect]
     Active Substance: FLUOROURACIL
     Indication: ADENOCARCINOMA GASTRIC
     Dosage: 2400 MG/M2 + 400 MG/M2
     Route: 042
     Dates: start: 20200701, end: 20201221

REACTIONS (7)
  - Hypokalaemia [Unknown]
  - Malaise [Unknown]
  - Malignant neoplasm progression [Fatal]
  - Muscular weakness [Not Recovered/Not Resolved]
  - Cough [Unknown]
  - Vomiting [Unknown]
  - Leukocytosis [Unknown]

NARRATIVE: CASE EVENT DATE: 20201229
